FAERS Safety Report 12701615 (Version 2)
Quarter: 2016Q3

REPORT INFORMATION
  Report Type: Spontaneous
  Country: JP (occurrence: JP)
  Receive Date: 20160831
  Receipt Date: 20160908
  Transmission Date: 20161109
  Serious: Yes (Other)
  Sender: FDA-Public Use
  Company Number: JP-BAUSCH-BL-2016-019611

PATIENT
  Age: 65 Year
  Sex: Male

DRUGS (3)
  1. LEVOFLOXACIN. [Concomitant]
     Active Substance: LEVOFLOXACIN
     Indication: SPINAL DISORDER
  2. METRONIDAZOLE. [Suspect]
     Active Substance: METRONIDAZOLE
     Indication: SPONDYLITIS
  3. METRONIDAZOLE. [Suspect]
     Active Substance: METRONIDAZOLE
     Indication: SPINAL DISORDER
     Dosage: CUMULATIVE DOSE 112 G
     Route: 048

REACTIONS (1)
  - Encephalopathy [Recovered/Resolved]
